FAERS Safety Report 5915164-8 (Version None)
Quarter: 2008Q4

REPORT INFORMATION
  Report Type: 
  Country: None (occurrence: None)
  Receive Date: 20081010
  Receipt Date: 20081007
  Transmission Date: 20090506
  Serious: Yes (Other)
  Sender: FDA-Public Use
  Company Number: US-BAYER-200825767NA

PATIENT
  Age: 15 Year
  Sex: Female
  Weight: 62 kg

DRUGS (2)
  1. MIRENA [Suspect]
     Indication: CONTRACEPTION
     Route: 015
     Dates: start: 20080610, end: 20080610
  2. MIRENA [Suspect]
     Route: 015

REACTIONS (2)
  - ABDOMINAL DISCOMFORT [None]
  - UTERINE RUPTURE [None]
